FAERS Safety Report 8200830-4 (Version None)
Quarter: 2012Q1

REPORT INFORMATION
  Report Type: 
  Country: None (occurrence: None)
  Receive Date: 20120223
  Receipt Date: 20120217
  Transmission Date: 20120608
  Serious: Yes (Hospitalization)
  Sender: FDA-Public Use
  Company Number: 2012030909

PATIENT
  Age: 31 Year
  Sex: Female

DRUGS (4)
  1. NEXIUM [Concomitant]
  2. CARVEDILOL [Concomitant]
  3. PRIVIGEN [Suspect]
     Indication: CHRONIC INFLAMMATORY DEMYELINATING POLYRADICULONEUROPATHY
     Dosage: 100 MG/ML
     Dates: start: 20111123
  4. SUCRALFAT (SUCRALFATE) [Concomitant]

REACTIONS (3)
  - OFF LABEL USE [None]
  - MYALGIA [None]
  - MENINGITIS ASEPTIC [None]
